APPROVED DRUG PRODUCT: ALBUTEROL SULFATE
Active Ingredient: ALBUTEROL SULFATE
Strength: EQ 0.021% BASE
Dosage Form/Route: SOLUTION;INHALATION
Application: A076355 | Product #002 | TE Code: AN
Applicant: NEPHRON PHARMACEUTICALS CORP
Approved: Mar 31, 2010 | RLD: No | RS: No | Type: RX